FAERS Safety Report 9812875 (Version 1)
Quarter: 2014Q1

REPORT INFORMATION
  Report Type: Spontaneous
  Country: US (occurrence: None)
  Receive Date: 20140109
  Receipt Date: 20140109
  Transmission Date: 20141002
  Serious: No
  Sender: FDA-Public Use
  Company Number: None

PATIENT
  Age: 68 Year
  Sex: Female
  Weight: 79.38 kg

DRUGS (7)
  1. CLINDAMYCIN [Suspect]
     Indication: TOOTH INFECTION
     Dosage: ONE CAPSULE
     Route: 048
     Dates: start: 20131216, end: 20131225
  2. FEXOFENADINE [Concomitant]
  3. LEVOXYL [Concomitant]
  4. QVAR [Concomitant]
  5. PATANOL [Concomitant]
  6. RHINOCORT [Concomitant]
  7. VITAMIN D [Concomitant]

REACTIONS (7)
  - Rash [None]
  - Nausea [None]
  - Pruritus [None]
  - Dysgeusia [None]
  - Chills [None]
  - Swollen tongue [None]
  - Diarrhoea [None]
